FAERS Safety Report 21933019 (Version 1)
Quarter: 2023Q1

REPORT INFORMATION
  Report Type: Report from Study
  Country: US (occurrence: US)
  Receive Date: 20230131
  Receipt Date: 20230131
  Transmission Date: 20230418
  Serious: Yes (Hospitalization, Other)
  Sender: FDA-Public Use
  Company Number: US-BAUSCH-BL-2023-001580

PATIENT
  Age: 67 Year
  Sex: Female
  Weight: 73.66 kg

DRUGS (20)
  1. XIFAXAN [Suspect]
     Active Substance: RIFAXIMIN
     Indication: Hepatic encephalopathy
     Dosage: 1 TABLET ORALLY TWICE A DAY
     Route: 048
  2. CIPROFLOXACIN HYDROCHLORIDE [Concomitant]
     Active Substance: CIPROFLOXACIN HYDROCHLORIDE
     Indication: Spontaneous bacterial peritonitis
     Dosage: TABLET ORALLY EVERY 12 HRS
     Route: 048
  3. CIPROFLOXACIN HYDROCHLORIDE [Concomitant]
     Active Substance: CIPROFLOXACIN HYDROCHLORIDE
     Indication: Hepatic cirrhosis
  4. MIRTAZAPINE [Concomitant]
     Active Substance: MIRTAZAPINE
     Indication: Depression
     Dosage: TABLET AT BEDTIME ORALLY
     Route: 048
  5. CALCIUM CITRATE + D3 [Concomitant]
     Indication: Product used for unknown indication
     Dosage: 200-6.25 MG-MCG TABLET 1 TABLET ORALLY TWICE A DAY
     Route: 048
  6. POTASSIUM CHLORIDE [Concomitant]
     Active Substance: POTASSIUM CHLORIDE
     Indication: Product used for unknown indication
     Dosage: 10 MEQ/100ML SOLUTION AS DIRECTED INTRAVENOUS
     Route: 042
  7. HYDROXYZINE PAMOATE [Concomitant]
     Active Substance: HYDROXYZINE PAMOATE
     Indication: Product used for unknown indication
     Dosage: 1 CAPSULE AT BEDTIME AS NEEDED ORALLY ONCE A DAY
     Route: 048
  8. ONDANSETRON [Concomitant]
     Active Substance: ONDANSETRON
     Indication: Product used for unknown indication
     Dosage: TABLET DISINTEGRATING 1 TABLET ON THE TONGUE AND ALLOW TO DISSOLVE ORALLY ONCE A DAY
     Route: 048
  9. SODIUM BICARBONATE [Concomitant]
     Active Substance: SODIUM BICARBONATE
     Indication: Product used for unknown indication
     Dosage: TABLET AS DIRECTED ORALLY
     Route: 048
  10. MIDODRINE HYDROCHLORIDE [Concomitant]
     Active Substance: MIDODRINE HYDROCHLORIDE
     Indication: Product used for unknown indication
     Dosage: 1 TABLET ORALLY TWICE A DAY
     Route: 048
  11. LACTULOSE [Concomitant]
     Active Substance: LACTULOSE
     Indication: Hepatic encephalopathy
     Dosage: 10 GM/15ML. SOLUTION 15 ML AS NEEDED ORALLY ONCE A DAY
     Route: 048
  12. LACTULOSE [Concomitant]
     Active Substance: LACTULOSE
     Indication: Hepatic cirrhosis
  13. ZINC [Concomitant]
     Active Substance: ZINC
     Indication: Hepatic encephalopathy
     Dosage: 220 (50 ZA) MG CAPSULE 1 TABLET ORALLY TWICE DAILY
     Route: 048
  14. TRIAMCINOLONE ACETONIDE [Concomitant]
     Active Substance: TRIAMCINOLONE ACETONIDE
     Indication: Product used for unknown indication
     Dosage: 1 APPLICATION EXTERNALLY ONCE A DAY
     Route: 061
  15. CLOBETASOL PROPIONATE [Concomitant]
     Active Substance: CLOBETASOL PROPIONATE
     Indication: Product used for unknown indication
     Dosage: 1 APPLICATION EXTERNALLY TWICE A DAY
     Route: 061
  16. GLIMEPIRIDE [Concomitant]
     Active Substance: GLIMEPIRIDE
     Indication: Product used for unknown indication
     Dosage: 1 TABLET WITH BREAKFAST OR THE FIRST MAIN MEAL OF THE DAY ORALLY TWICE A DAY
     Route: 048
  17. LEVOCETIRIZINE DIHYDROCHLORIDE [Concomitant]
     Active Substance: LEVOCETIRIZINE DIHYDROCHLORIDE
     Indication: Product used for unknown indication
     Dosage: 1 TABLET IN THE EVENING ORALLY ONCE A DAY
     Route: 048
  18. ESTRADIOL [Concomitant]
     Active Substance: ESTRADIOL
     Indication: Product used for unknown indication
     Dosage: 1/2 ORALLY THREE TIMES A WEEK
     Route: 048
  19. FAMOTIDINE [Concomitant]
     Active Substance: FAMOTIDINE
     Indication: Product used for unknown indication
     Dosage: 1 TABLET AT BEDTIME ORALLY ONCE A DAY
     Route: 048
  20. PROTEIN [Concomitant]
     Active Substance: PROTEIN
     Indication: Sarcopenia

REACTIONS (4)
  - Confusional state [Unknown]
  - Renal arteriovenous malformation [Unknown]
  - Ascites [Unknown]
  - Hypertension [Unknown]

NARRATIVE: CASE EVENT DATE: 20221031
